FAERS Safety Report 5835598-X (Version None)
Quarter: 2008Q3

REPORT INFORMATION
  Report Type: 
  Country: None (occurrence: None)
  Receive Date: 20080806
  Receipt Date: 20080728
  Transmission Date: 20090109
  Serious: Yes (Other)
  Sender: FDA-Public Use
  Company Number: PHBS2008GB04838

PATIENT
  Sex: Male

DRUGS (4)
  1. STALEVO 100 [Suspect]
     Indication: PARKINSON'S DISEASE
     Dosage: 150 MG, TID
     Route: 048
     Dates: start: 20080101
  2. LEVODOPA [Concomitant]
     Indication: PARKINSON'S DISEASE
     Dosage: UNK,UNK
     Route: 065
  3. PRAMIPEXOLE DIHYDROCHLORIDE [Concomitant]
     Dosage: UNK
     Route: 048
     Dates: start: 20020101
  4. FYBOGEL [Concomitant]
     Dosage: 1 SACHET
     Route: 048

REACTIONS (1)
  - RAYNAUD'S PHENOMENON [None]
